FAERS Safety Report 5299562-4 (Version None)
Quarter: 2007Q2

REPORT INFORMATION
  Report Type: 
  Country: None (occurrence: None)
  Receive Date: 20070410
  Receipt Date: 20070402
  Transmission Date: 20071010
  Serious: Yes (Other)
  Sender: FDA-Public Use
  Company Number: A0645584A

PATIENT
  Age: 52 Year
  Sex: Female

DRUGS (3)
  1. IMITREX [Suspect]
     Indication: MIGRAINE
     Dosage: 100 MG/SEE DOSAGE TEXT/ORAL
     Route: 048
     Dates: start: 19870101
  2. ROPINIROLE HCL [Concomitant]
  3. FIORICET [Concomitant]

REACTIONS (4)
  - DRUG INEFFECTIVE [None]
  - MIGRAINE [None]
  - MUSCLE ATROPHY [None]
  - WEIGHT DECREASED [None]
